FAERS Safety Report 19222089 (Version 4)
Quarter: 2023Q1

REPORT INFORMATION
  Report Type: Spontaneous
  Country: DE (occurrence: DE)
  Receive Date: 20210505
  Receipt Date: 20230317
  Transmission Date: 20230418
  Serious: Yes (Life-Threatening, Hospitalization, Other)
  Sender: FDA-Public Use
  Company Number: NVSC2020DE327968

PATIENT
  Sex: Female
  Weight: 100 kg

DRUGS (77)
  1. HYDROCHLOROTHIAZIDE\VALSARTAN [Suspect]
     Active Substance: HYDROCHLOROTHIAZIDE\VALSARTAN
     Indication: Hypertension
     Dosage: UNK
     Route: 065
     Dates: start: 201407, end: 201407
  2. HYDROCHLOROTHIAZIDE\VALSARTAN [Suspect]
     Active Substance: HYDROCHLOROTHIAZIDE\VALSARTAN
     Dosage: UNK
     Route: 065
     Dates: start: 201410, end: 201704
  3. HYDROCHLOROTHIAZIDE\VALSARTAN [Suspect]
     Active Substance: HYDROCHLOROTHIAZIDE\VALSARTAN
     Dosage: UNK
     Route: 065
     Dates: start: 20140707
  4. HYDROCHLOROTHIAZIDE\VALSARTAN [Suspect]
     Active Substance: HYDROCHLOROTHIAZIDE\VALSARTAN
     Dosage: UNK
     Route: 065
     Dates: start: 20141014
  5. HYDROCHLOROTHIAZIDE\VALSARTAN [Suspect]
     Active Substance: HYDROCHLOROTHIAZIDE\VALSARTAN
     Dosage: UNK
     Route: 065
     Dates: start: 20150102
  6. HYDROCHLOROTHIAZIDE\VALSARTAN [Suspect]
     Active Substance: HYDROCHLOROTHIAZIDE\VALSARTAN
     Dosage: UNK
     Route: 065
     Dates: start: 20150415
  7. HYDROCHLOROTHIAZIDE\VALSARTAN [Suspect]
     Active Substance: HYDROCHLOROTHIAZIDE\VALSARTAN
     Dosage: UNK
     Route: 065
     Dates: start: 20150611
  8. HYDROCHLOROTHIAZIDE\VALSARTAN [Suspect]
     Active Substance: HYDROCHLOROTHIAZIDE\VALSARTAN
     Dosage: UNK
     Route: 065
     Dates: start: 20160427
  9. HYDROCHLOROTHIAZIDE\VALSARTAN [Suspect]
     Active Substance: HYDROCHLOROTHIAZIDE\VALSARTAN
     Dosage: UNK
     Route: 065
     Dates: start: 20160804
  10. HYDROCHLOROTHIAZIDE\VALSARTAN [Suspect]
     Active Substance: HYDROCHLOROTHIAZIDE\VALSARTAN
     Dosage: UNK
     Route: 065
     Dates: start: 20170112
  11. VALSARTAN [Suspect]
     Active Substance: VALSARTAN
     Indication: Hypertension
     Dosage: 80 MG
     Route: 065
     Dates: start: 20140707
  12. VALSARTAN [Suspect]
     Active Substance: VALSARTAN
     Dosage: 80 MG, QD
     Route: 065
     Dates: start: 201407, end: 201410
  13. VALSARTAN [Suspect]
     Active Substance: VALSARTAN
     Dosage: 160/ 12.5 MG
     Route: 065
     Dates: start: 201407, end: 201410
  14. VALSARTAN [Suspect]
     Active Substance: VALSARTAN
     Dosage: UNK
     Route: 065
     Dates: start: 20140707
  15. VALSARTAN [Suspect]
     Active Substance: VALSARTAN
     Dosage: UNK
     Route: 065
     Dates: start: 20140707
  16. VALSARTAN [Suspect]
     Active Substance: VALSARTAN
     Dosage: UNK, QD
     Route: 065
     Dates: start: 201407
  17. VALSARTAN [Suspect]
     Active Substance: VALSARTAN
     Dosage: 80 MG
     Route: 065
     Dates: start: 201407
  18. VALSARTAN [Suspect]
     Active Substance: VALSARTAN
     Dosage: UNK
     Route: 065
     Dates: start: 201410
  19. VALSARTAN [Suspect]
     Active Substance: VALSARTAN
     Dosage: UNK
     Route: 065
     Dates: start: 20141014
  20. VALSARTAN [Suspect]
     Active Substance: VALSARTAN
     Dosage: UNK
     Route: 065
     Dates: start: 20150611
  21. VALSARTAN [Suspect]
     Active Substance: VALSARTAN
     Dosage: UNK
     Route: 065
     Dates: start: 20150102
  22. VALSARTAN [Suspect]
     Active Substance: VALSARTAN
     Dosage: UNK
     Route: 065
     Dates: start: 20150415
  23. VALSARTAN [Suspect]
     Active Substance: VALSARTAN
     Dosage: UNK
     Route: 065
     Dates: start: 20160427
  24. VALSARTAN [Suspect]
     Active Substance: VALSARTAN
     Indication: Hypertension
     Dosage: UNK, QD (ONCE IN THE MORNING)
     Route: 065
     Dates: start: 2008
  25. DICLOFENAC [Suspect]
     Active Substance: DICLOFENAC
     Indication: Product used for unknown indication
     Dosage: UNK
     Route: 065
  26. ASPIRIN [Suspect]
     Active Substance: ASPIRIN
     Indication: Product used for unknown indication
     Dosage: UNK
     Route: 065
  27. ACETAMINOPHEN [Suspect]
     Active Substance: ACETAMINOPHEN
     Indication: Product used for unknown indication
     Dosage: UNK
     Route: 065
  28. IBUPROFEN [Suspect]
     Active Substance: IBUPROFEN
     Indication: Product used for unknown indication
     Dosage: UNK
     Route: 065
  29. CYCLOPHOSPHAMIDE [Suspect]
     Active Substance: CYCLOPHOSPHAMIDE
     Indication: Hodgkin^s disease
     Dosage: 750 MG/M2
     Route: 065
     Dates: start: 20160113
  30. PREDNISOLONE [Suspect]
     Active Substance: PREDNISOLONE
     Indication: Hodgkin^s disease
     Dosage: 40 MG MG/M2 (80 MG), DAY 1 ? 14, DAILY
     Route: 065
     Dates: start: 20160113, end: 20160126
  31. BACLOFEN [Suspect]
     Active Substance: BACLOFEN
     Indication: Product used for unknown indication
     Dosage: 200 UG, VIA PUMP
     Route: 065
  32. BACLOFEN [Suspect]
     Active Substance: BACLOFEN
     Dosage: 200 UG, VIA PUMP
     Route: 065
  33. ETOPOSIDE [Suspect]
     Active Substance: ETOPOSIDE
     Indication: Hodgkin^s disease
     Dosage: 100 MG/M2, DAY 1-3
     Route: 065
     Dates: start: 20160113
  34. DOXORUBICIN [Suspect]
     Active Substance: DOXORUBICIN
     Indication: Hodgkin^s disease
     Dosage: 25 MG/M2 (DAY 1 AND DAY 15)
     Route: 065
     Dates: start: 20151027, end: 201512
  35. DOXORUBICIN [Suspect]
     Active Substance: DOXORUBICIN
     Dosage: 25 MG/M2 (DAY 1)
     Route: 065
     Dates: start: 20160113
  36. BLEOMYCIN [Suspect]
     Active Substance: BLEOMYCIN SULFATE
     Indication: Hodgkin^s disease
     Dosage: 25 MG/M2 (DAY 1 AND DAY 15)
     Route: 065
     Dates: start: 20151027, end: 201512
  37. BLEOMYCIN [Suspect]
     Active Substance: BLEOMYCIN SULFATE
     Dosage: 10 MG/M2, DAY 8
     Route: 065
     Dates: start: 20160120
  38. VINBLASTINE [Suspect]
     Active Substance: VINBLASTINE
     Indication: Hodgkin^s disease
     Dosage: 6 MG/M2, (DAY 1 AND DAY 15)
     Route: 065
     Dates: start: 20151027, end: 201512
  39. DACARBAZINE [Suspect]
     Active Substance: DACARBAZINE
     Indication: Hodgkin^s disease
     Dosage: 375 MG/M2, DAY 1 AND DAY 15
     Route: 065
     Dates: start: 20151027, end: 201512
  40. VINCRISTINE [Suspect]
     Active Substance: VINCRISTINE
     Indication: Hodgkin^s disease
     Dosage: 2 MG ABSOLUTE, DAY 8
     Route: 065
     Dates: start: 20160120
  41. PROCARBAZINE [Suspect]
     Active Substance: PROCARBAZINE
     Indication: Hodgkin^s disease
     Dosage: 100 MG/M2 (200 MG), DAY 1-7, DAILY
     Route: 065
     Dates: start: 20190113, end: 20190119
  42. LENOGRASTIM [Suspect]
     Active Substance: LENOGRASTIM
     Indication: Neutropenia
     Dosage: 1X 34, QD, 1X DAILY.
     Route: 065
     Dates: start: 20160120, end: 201601
  43. LENOGRASTIM [Suspect]
     Active Substance: LENOGRASTIM
     Dosage: 1X 34, QD, 1X DAILY.
     Route: 065
     Dates: start: 20160203, end: 20160205
  44. NEULASTA [Suspect]
     Active Substance: PEGFILGRASTIM
     Indication: Neutropenia
     Dosage: UNK
     Route: 058
     Dates: start: 20151212, end: 20151212
  45. PIRITRAMIDE [Suspect]
     Active Substance: PIRITRAMIDE
     Indication: Back pain
     Dosage: 15 MG
     Route: 058
     Dates: start: 20150608
  46. PIRITRAMIDE [Suspect]
     Active Substance: PIRITRAMIDE
     Indication: Pain in extremity
  47. HYDROCHLOROTHIAZIDE\VALSARTAN [Concomitant]
     Active Substance: HYDROCHLOROTHIAZIDE\VALSARTAN
     Indication: Hypertension
     Dosage: UNK
     Route: 065
     Dates: start: 201704, end: 2017
  48. HYDROCHLOROTHIAZIDE\VALSARTAN [Concomitant]
     Active Substance: HYDROCHLOROTHIAZIDE\VALSARTAN
     Dosage: UNK
     Route: 065
     Dates: start: 20170411
  49. HYDROCHLOROTHIAZIDE\VALSARTAN [Concomitant]
     Active Substance: HYDROCHLOROTHIAZIDE\VALSARTAN
     Dosage: UNK
     Route: 065
     Dates: start: 20170725
  50. VALSARTAN [Concomitant]
     Active Substance: VALSARTAN
     Indication: Hypertension
     Dosage: UNK
     Route: 065
     Dates: start: 201301
  51. VALSARTAN [Concomitant]
     Active Substance: VALSARTAN
     Dosage: UNK
     Route: 065
     Dates: start: 20130124
  52. MORPHINE [Concomitant]
     Active Substance: MORPHINE
     Indication: Pain
     Dosage: UNK, VIA PUMP
     Route: 065
  53. MOVICOL [Concomitant]
     Active Substance: POLYETHYLENE GLYCOL 3350\POTASSIUM CHLORIDE\SODIUM BICARBONATE\SODIUM CHLORIDE
     Indication: Product used for unknown indication
     Dosage: 1 DF, SACHET, 1X IF NEEDED
     Route: 065
  54. HYDROMORPHONE [Concomitant]
     Active Substance: HYDROMORPHONE
     Indication: Product used for unknown indication
     Dosage: 8 MG, BID
     Route: 065
     Dates: end: 201511
  55. CLORAZEPATE DIPOTASSIUM [Concomitant]
     Active Substance: CLORAZEPATE DIPOTASSIUM
     Indication: Product used for unknown indication
     Dosage: 10 MG, QD (1X 10 MG, QD, 1X DAILY (MORNING))
     Route: 065
  56. CLORAZEPATE DIPOTASSIUM [Concomitant]
     Active Substance: CLORAZEPATE DIPOTASSIUM
     Dosage: 15 MG, QD (1X 15 MG, QD, 1X DAILY (EVENING OR NIGHT))
     Route: 065
  57. CLORAZEPATE DIPOTASSIUM [Concomitant]
     Active Substance: CLORAZEPATE DIPOTASSIUM
     Dosage: 10 MG, BID (1X 10 MG, BID, 2X DAILY (MORNING AND EVENING))
     Route: 065
  58. DIAZEPAM [Concomitant]
     Active Substance: DIAZEPAM
     Indication: Product used for unknown indication
     Dosage: 1X 2.5, QD, 1X DAILY (MORNING)
     Route: 065
  59. DIAZEPAM [Concomitant]
     Active Substance: DIAZEPAM
     Dosage: 1X 2.5, QD, 1X DAILY (EVENING)
     Route: 065
  60. CITALOPRAM [Concomitant]
     Active Substance: CITALOPRAM HYDROBROMIDE
     Indication: Product used for unknown indication
     Dosage: 1X 20, 1X DAILY (MORNING)
     Route: 065
  61. LYRICA [Concomitant]
     Active Substance: PREGABALIN
     Indication: Product used for unknown indication
     Dosage: 1X 150, 2X DAILY (MORNING AND EVENING)
     Route: 065
  62. LYRICA [Concomitant]
     Active Substance: PREGABALIN
     Dosage: 1X 150, 1X, STOP DATE: ?? FEB/MAR 2016
     Route: 065
     Dates: end: 2016
  63. LYRICA [Concomitant]
     Active Substance: PREGABALIN
     Dosage: 1X 75, 1X DAILY (EVENING), START DATE: ?? FEB/MAR 2016
     Route: 065
     Dates: start: 2016
  64. LYRICA [Concomitant]
     Active Substance: PREGABALIN
     Dosage: 2X 75, 1X DAILY (MORNING), START DATE: ?? FEB/MAR 2016
     Route: 065
     Dates: start: 2016
  65. LYRICA [Concomitant]
     Active Substance: PREGABALIN
     Dosage: 1X 150, 2X DAILY (MORNING AND EVENING)
     Route: 065
  66. LYRICA [Concomitant]
     Active Substance: PREGABALIN
     Dosage: 1X 150, 1X, STOP DATE: ?? FEB/MAR 2016
     Route: 065
     Dates: end: 2016
  67. PANTOZOL [Concomitant]
     Active Substance: PANTOPRAZOLE SODIUM
     Indication: Product used for unknown indication
     Dosage: 1X 40, 1X DAILY (MORNING)
     Route: 065
  68. PANTOZOL [Concomitant]
     Active Substance: PANTOPRAZOLE SODIUM
     Dosage: 1X 40, 1X DAILY (EVENING)
     Route: 065
  69. SULFAMETHOXAZOLE\TRIMETHOPRIM [Concomitant]
     Active Substance: SULFAMETHOXAZOLE\TRIMETHOPRIM
     Indication: Pneumonia
     Dosage: 1 DF, BID, DF (ON (SATURDAY AND SUNDAY)
     Route: 065
  70. CLONIDINE [Concomitant]
     Active Substance: CLONIDINE
     Indication: Hypertension
     Dosage: 0.15 UG, BID (ONCE IN THE MORNING, ONCE IN THE EVENING (1-0-1))
     Route: 065
  71. CLONIDINE [Concomitant]
     Active Substance: CLONIDINE
     Dosage: 0.5 MG, BID (2X 0.5 MG)
     Route: 065
  72. CLONIDINE [Concomitant]
     Active Substance: CLONIDINE
     Dosage: 50 MG (50 MG (ONCE IN THE MORNING, ONCE IN THE EVENING (1-0-1 / 2X1)))
     Route: 065
  73. LEVOTHYROXINE [Concomitant]
     Active Substance: LEVOTHYROXINE
     Indication: Product used for unknown indication
     Dosage: UNK
     Route: 065
  74. SULFAMETHOXAZOLE\TRIMETHOPRIM [Concomitant]
     Active Substance: SULFAMETHOXAZOLE\TRIMETHOPRIM
     Indication: Product used for unknown indication
     Dosage: UNK
     Route: 065
  75. ENOXAPARIN SODIUM [Concomitant]
     Active Substance: ENOXAPARIN SODIUM
     Indication: Product used for unknown indication
     Dosage: 40 MG, QD
     Route: 058
  76. CHOLECALCIFEROL [Concomitant]
     Active Substance: CHOLECALCIFEROL
     Indication: Product used for unknown indication
     Dosage: 100 MG
     Route: 048
  77. MOTILIUM [Concomitant]
     Active Substance: DOMPERIDONE
     Indication: Product used for unknown indication
     Dosage: 1 DF,SACHET, 4X DAILY
     Route: 065

REACTIONS (72)
  - Hodgkin^s disease [Unknown]
  - Lymphadenopathy [Recovering/Resolving]
  - Splenomegaly [Unknown]
  - General physical health deterioration [Unknown]
  - Red blood cell sedimentation rate increased [Unknown]
  - Back pain [Recovering/Resolving]
  - Pain in extremity [Recovering/Resolving]
  - Bone pain [Unknown]
  - Pneumonia [Unknown]
  - Hyperpyrexia [Unknown]
  - Tissue infiltration [Unknown]
  - Spinal pain [Unknown]
  - Viral infection [Unknown]
  - Pyrexia [Unknown]
  - Pain [Recovering/Resolving]
  - Dyspnoea [Recovering/Resolving]
  - Hypothyroidism [Unknown]
  - Dysphagia [Unknown]
  - Urinary tract infection [Unknown]
  - Klebsiella infection [Unknown]
  - Candida infection [Unknown]
  - Pulmonary congestion [Unknown]
  - Basal ganglion degeneration [Unknown]
  - Drug abuse [Unknown]
  - Headache [Unknown]
  - Cough [Unknown]
  - Vomiting [Recovering/Resolving]
  - Nausea [Recovering/Resolving]
  - Neutropenia [Recovering/Resolving]
  - Hypokinesia [Not Recovered/Not Resolved]
  - Fall [Unknown]
  - Psychogenic seizure [Unknown]
  - Respiratory failure [Unknown]
  - Muscle spasticity [Unknown]
  - Loss of consciousness [Unknown]
  - Monoplegia [Unknown]
  - Inflammation [Recovering/Resolving]
  - Sepsis [Unknown]
  - Pyrexia [Recovered/Resolved]
  - Fatigue [Unknown]
  - Fatigue [Unknown]
  - Tenderness [Unknown]
  - Speech disorder [Unknown]
  - Tremor [Unknown]
  - Neurological decompensation [Recovering/Resolving]
  - Haematoma [Unknown]
  - Somnolence [Recovering/Resolving]
  - Intervertebral disc disorder [Unknown]
  - Lung disorder [Unknown]
  - Hyperventilation [Unknown]
  - Obesity [Unknown]
  - Hepatic steatosis [Unknown]
  - Sleep disorder [Unknown]
  - Hypochromic anaemia [Unknown]
  - Drug hypersensitivity [Unknown]
  - Fall [Unknown]
  - Arthralgia [Unknown]
  - Fall [Recovered/Resolved]
  - Inguinal hernia [Unknown]
  - Renal cyst [Unknown]
  - Uterine enlargement [Unknown]
  - Hyperhidrosis [Unknown]
  - Drug intolerance [Unknown]
  - Emotional distress [Unknown]
  - Fear [Unknown]
  - Anaphylactic reaction [Unknown]
  - Anaesthesia [Recovering/Resolving]
  - Sleep apnoea syndrome [Unknown]
  - Tachycardia [Unknown]
  - Dizziness [Unknown]
  - Myalgia [Unknown]
  - Device malfunction [Unknown]

NARRATIVE: CASE EVENT DATE: 20150608
